FAERS Safety Report 4745173-6 (Version None)
Quarter: 2005Q3

REPORT INFORMATION
  Report Type: 
  Country: None (occurrence: None)
  Receive Date: 20050815
  Receipt Date: 20050725
  Transmission Date: 20060218
  Serious: Yes (Hospitalization)
  Sender: FDA-Public Use
  Company Number: AT-BOEHRINGER INGELHEIM PHARMACEUTICALS, INC.-2005-BE-00064BE

PATIENT
  Sex: Female
  Weight: 48 kg

DRUGS (4)
  1. TIPRANAVIR + RITONAVIR CO-ADMIN [Suspect]
     Indication: RETROVIRAL INFECTION
     Dosage: TPV 250MG / RTV 100MG; DAILY DOSE TPV 1000MG / RTV 200MG
     Route: 048
     Dates: start: 20040923
  2. TENOFOVIR [Concomitant]
     Indication: RETROVIRAL INFECTION
     Route: 048
     Dates: start: 20031201
  3. LAMIVUDINE [Concomitant]
     Indication: RETROVIRAL INFECTION
     Route: 048
     Dates: start: 20030916
  4. MORPHINE [Concomitant]
     Indication: SUBSTITUTION THERAPY
     Route: 048
     Dates: start: 20041217

REACTIONS (2)
  - CYSTITIS [None]
  - DEPRESSION [None]
